FAERS Safety Report 8330049-8 (Version None)
Quarter: 2012Q2

REPORT INFORMATION
  Report Type: 
  Country: None (occurrence: None)
  Receive Date: 20120502
  Receipt Date: 20120427
  Transmission Date: 20120825
  Serious: Yes (Other)
  Sender: FDA-Public Use
  Company Number: ES-BRACCO-000605

PATIENT
  Sex: Female
  Weight: 80 kg

DRUGS (2)
  1. MULTIHANCE [Suspect]
     Indication: HEPATIC NEOPLASM
     Route: 042
     Dates: start: 20120423, end: 20120423
  2. MULTIHANCE [Suspect]
     Indication: NUCLEAR MAGNETIC RESONANCE IMAGING ABDOMINAL
     Route: 042
     Dates: start: 20120423, end: 20120423

REACTIONS (9)
  - PRESYNCOPE [None]
  - PALLOR [None]
  - HYPOTENSION [None]
  - DYSPNOEA [None]
  - URTICARIA [None]
  - BLINDNESS [None]
  - ERYTHEMA [None]
  - FEELING HOT [None]
  - HYPERHIDROSIS [None]
